FAERS Safety Report 12310579 (Version 1)
Quarter: 2016Q2

REPORT INFORMATION
  Report Type: Spontaneous
  Country: KE (occurrence: KE)
  Receive Date: 20160427
  Receipt Date: 20160427
  Transmission Date: 20160815
  Serious: Yes (Hospitalization)
  Sender: FDA-Public Use
  Company Number: KE-MYLANLABS-2016M1017326

PATIENT

DRUGS (6)
  1. OXYGEN. [Concomitant]
     Active Substance: OXYGEN
     Indication: GENERAL ANAESTHESIA
     Route: 065
  2. LIDOCAINE. [Suspect]
     Active Substance: LIDOCAINE
     Indication: PROPHYLAXIS
     Dosage: A TOTAL OF 25 C.C OF THE SOLUTION CONTAINING 0.4% LIGNOCAINE WITH ADRENALINE 1:100,000
     Route: 065
  3. EPINEPHRINE. [Suspect]
     Active Substance: EPINEPHRINE
     Indication: PROPHYLAXIS
     Dosage: 0.5 C.C (1:1000); A TOTAL OF 25 C.C OF THE SOLUTION CONTAINING 0.4% LIGNOCAINE WITH ADRENALINE 1:100
     Route: 065
  4. SODIUM CHLORIDE. [Concomitant]
     Active Substance: SODIUM CHLORIDE
     Dosage: 39.5 C.C
     Route: 065
  5. NITROUS OXIDE. [Concomitant]
     Active Substance: NITROUS OXIDE
     Indication: GENERAL ANAESTHESIA
     Route: 065
  6. HALOTHANE. [Concomitant]
     Active Substance: HALOTHANE
     Indication: GENERAL ANAESTHESIA
     Route: 065

REACTIONS (5)
  - Toxicity to various agents [Recovered/Resolved]
  - Sinus tachycardia [Recovered/Resolved]
  - Product preparation error [Recovered/Resolved]
  - Myoclonus [Recovered/Resolved]
  - Overdose [Recovered/Resolved]
